FAERS Safety Report 7071542 (Version 2)
Quarter: 2012Q4

REPORT INFORMATION
  Report Type: Report from Study
  Country: CO (occurrence: CO)
  Receive Date: 20090804
  Receipt Date: 20120919
  Transmission Date: 20130627
  Serious: Yes (Death)
  Sender: FDA-Public Use
  Company Number: CO-PFIZER INC-2009246315

PATIENT
  Age: 61 Year
  Sex: Male

DRUGS (5)
  1. SUTENT [Suspect]
     Indication: RENAL CANCER
     Dosage: 50 mg, 1x/day
     Route: 048
     Dates: start: 20090512
  2. FLUOXETINE [Concomitant]
  3. TRAZODONE [Concomitant]
  4. METOPROLOL [Concomitant]
  5. LOSARTAN [Concomitant]

REACTIONS (4)
  - Abdominal pain [Fatal]
  - Mucosal inflammation [Fatal]
  - Death [Fatal]
  - Influenza [Unknown]
